FAERS Safety Report 13393776 (Version 1)
Quarter: 2017Q1

REPORT INFORMATION
  Report Type: Report from Study
  Country: None (occurrence: BR)
  Receive Date: 20170331
  Receipt Date: 20170331
  Transmission Date: 20170429
  Serious: Yes (Hospitalization, Other)
  Sender: FDA-Public Use
  Company Number: BR-ABBVIE-17P-020-1929107-00

PATIENT
  Age: 61 Year
  Sex: Female

DRUGS (8)
  1. SYNTHROID [Suspect]
     Active Substance: LEVOTHYROXINE SODIUM
     Indication: HYPOTHYROIDISM
     Dosage: DAILY DOSE: 1 TBL; 75 MICROGRAM; ORAL; MORNING (FASTING)
     Route: 048
  2. SYNTHROID [Suspect]
     Active Substance: LEVOTHYROXINE SODIUM
     Indication: AUTOIMMUNE THYROIDITIS
     Dosage: DAILY DOSE: 1 TBL; 50 MICROGRAM; ORAL; MORNING (FASTING)
     Route: 048
  3. LISADOR [Concomitant]
     Active Substance: DIPYRONE\PROMETHAZINE HYDROCHLORIDE
     Indication: MIGRAINE
     Dosage: HALF TABLET A DAY, OR ONE MORE HALF TABLET IF THE MIGRAINE PERSISTS
  4. NARAMIG [Concomitant]
     Active Substance: NARATRIPTAN HYDROCHLORIDE
     Indication: MIGRAINE
     Dosage: HALF TABLET A DAY, OR ONE MORE HALF TABLET IF THE MIGRAINE PERSISTS
  5. LEXOTAN [Concomitant]
     Active Substance: BROMAZEPAM
     Indication: INTERVERTEBRAL DISC PROTRUSION
  6. LACTO-PURGA [Concomitant]
     Indication: PRODUCT USED FOR UNKNOWN INDICATION
  7. LUFTAL [Concomitant]
     Active Substance: DIMETHICONE
     Indication: BOWEL PREPARATION
  8. SERTRALINE [Concomitant]
     Active Substance: SERTRALINE HYDROCHLORIDE
     Indication: DEPRESSION

REACTIONS (27)
  - Hernia [Unknown]
  - Ureteric operation [Unknown]
  - Blood pressure abnormal [Not Recovered/Not Resolved]
  - Syncope [Unknown]
  - Memory impairment [Unknown]
  - Dizziness [Unknown]
  - Renal impairment [Recovered/Resolved]
  - Renal pain [Unknown]
  - Spinal pain [Not Recovered/Not Resolved]
  - Dehydration [Unknown]
  - Drug ineffective [Unknown]
  - Blood cholesterol increased [Not Recovered/Not Resolved]
  - Fall [Recovered/Resolved]
  - Vomiting [Unknown]
  - Urinary tract infection [Not Recovered/Not Resolved]
  - Drug dispensing error [Unknown]
  - Mouth injury [Not Recovered/Not Resolved]
  - Dehydration [Unknown]
  - Ureteral disorder [Unknown]
  - Bladder operation [Unknown]
  - Wrong technique in product usage process [Not Recovered/Not Resolved]
  - Salivary gland disorder [Not Recovered/Not Resolved]
  - Ovarian cancer [Unknown]
  - Incorrect dose administered [Unknown]
  - Weight decreased [Not Recovered/Not Resolved]
  - Malaise [Unknown]
  - Blood pressure decreased [Unknown]

NARRATIVE: CASE EVENT DATE: 201606
